FAERS Safety Report 9009020 (Version 3)
Quarter: 2013Q2

REPORT INFORMATION
  Report Type: Spontaneous
  Country: DK (occurrence: DK)
  Receive Date: 20130111
  Receipt Date: 20130508
  Transmission Date: 20140414
  Serious: Yes (Disabling)
  Sender: FDA-Public Use
  Company Number: DK-009507513-1212DNK009675

PATIENT
  Age: 21 Year
  Sex: Female

DRUGS (1)
  1. MARVELON [Suspect]
     Indication: CONTRACEPTION
     Dosage: UNK
     Route: 048
     Dates: end: 20120626

REACTIONS (6)
  - Pain in extremity [Recovered/Resolved]
  - Musculoskeletal pain [Recovered/Resolved]
  - Thrombosis [Recovered/Resolved with Sequelae]
  - Skin discolouration [Not Recovered/Not Resolved]
  - Local swelling [Not Recovered/Not Resolved]
  - Neck pain [Recovered/Resolved]
